FAERS Safety Report 25653623 (Version 1)
Quarter: 2025Q3

REPORT INFORMATION
  Report Type: Report from Study
  Country: CA (occurrence: CA)
  Receive Date: 20250807
  Receipt Date: 20250807
  Transmission Date: 20251021
  Serious: Yes (Other)
  Sender: NOVARTIS
  Company Number: CA-002147023-NVSC2025CA124502

PATIENT
  Sex: Male

DRUGS (1)
  1. KESIMPTA [Suspect]
     Active Substance: OFATUMUMAB
     Indication: Relapsing-remitting multiple sclerosis
     Route: 058
     Dates: start: 20250801

REACTIONS (7)
  - Heart rate decreased [Recovering/Resolving]
  - Chills [Unknown]
  - Visual impairment [Recovered/Resolved]
  - Asthenia [Recovering/Resolving]
  - Gait inability [Recovered/Resolved]
  - Dehydration [Unknown]
  - Fatigue [Recovering/Resolving]
